FAERS Safety Report 16595244 (Version 2)
Quarter: 2019Q3

REPORT INFORMATION
  Report Type: Spontaneous
  Country: AT (occurrence: AT)
  Receive Date: 20190718
  Receipt Date: 20190802
  Transmission Date: 20191004
  Serious: Yes (Other)
  Sender: FDA-Public Use
  Company Number: AT-ASTRAZENECA-2019SF01598

PATIENT
  Sex: Female

DRUGS (1)
  1. IMFINZI [Suspect]
     Active Substance: DURVALUMAB
     Route: 042
     Dates: end: 20190516

REACTIONS (3)
  - Diffuse alveolar damage [Unknown]
  - Pneumonitis [Recovering/Resolving]
  - Oesophagitis [Recovering/Resolving]
